FAERS Safety Report 12646610 (Version 3)
Quarter: 2016Q4

REPORT INFORMATION
  Report Type: Spontaneous
  Country: US (occurrence: US)
  Receive Date: 20160812
  Receipt Date: 20161010
  Transmission Date: 20170207
  Serious: No
  Sender: FDA-Public Use
  Company Number: US-ASTRAZENECA-2016SE83996

PATIENT
  Sex: Female
  Weight: 68 kg

DRUGS (8)
  1. LANTUS [Concomitant]
     Active Substance: INSULIN GLARGINE
  2. BRILINTA [Suspect]
     Active Substance: TICAGRELOR
     Indication: ACUTE CORONARY SYNDROME
     Route: 048
     Dates: start: 201607
  3. COREG [Concomitant]
     Active Substance: CARVEDILOL
  4. SINGULAIR [Concomitant]
     Active Substance: MONTELUKAST SODIUM
  5. HUMALOG [Concomitant]
     Active Substance: INSULIN LISPRO
  6. SYNTHROID [Concomitant]
     Active Substance: LEVOTHYROXINE SODIUM
  7. BABY ASPIRIN [Concomitant]
     Active Substance: ASPIRIN
  8. ZETIA [Concomitant]
     Active Substance: EZETIMIBE

REACTIONS (5)
  - Nervousness [Unknown]
  - Malaise [Unknown]
  - Diabetes mellitus [Unknown]
  - Cough [Not Recovered/Not Resolved]
  - Dyspnoea [Recovered/Resolved]
